FAERS Safety Report 14857000 (Version 2)
Quarter: 2018Q3

REPORT INFORMATION
  Report Type: Report from Study
  Country: US (occurrence: US)
  Receive Date: 20180507
  Receipt Date: 20180824
  Transmission Date: 20181010
  Serious: Yes (Hospitalization)
  Sender: FDA-Public Use
  Company Number: US-BAYER-2018-082444

PATIENT
  Age: 32 Year
  Sex: Female
  Weight: 95 kg

DRUGS (13)
  1. ADEMPAS [Suspect]
     Active Substance: RIOCIGUAT
     Indication: PULMONARY ARTERIAL HYPERTENSION
     Dosage: 0.5 MG, TID
     Route: 048
     Dates: start: 20170615
  2. FLOVENT HFA [Concomitant]
     Active Substance: FLUTICASONE PROPIONATE
  3. AZATHIOPRINE. [Concomitant]
     Active Substance: AZATHIOPRINE
     Dosage: 4 DF, UNK
     Route: 048
     Dates: start: 20180521
  4. CYCLOBENZAPRINE. [Concomitant]
     Active Substance: CYCLOBENZAPRINE
     Dosage: 10 MG, BID
     Route: 048
  5. ORENITRAM [Concomitant]
     Active Substance: TREPROSTINIL
  6. DILTIAZEM. [Concomitant]
     Active Substance: DILTIAZEM
     Dosage: 1 DF, UNK
     Route: 048
  7. HYDROXYCHLOROQUINE [Concomitant]
     Active Substance: HYDROXYCHLOROQUINE
     Dosage: 200 MG, UNK
     Route: 048
  8. MICROGESTIN [Concomitant]
     Active Substance: ETHINYL ESTRADIOL\NORETHINDRONE ACETATE
  9. ADEMPAS [Suspect]
     Active Substance: RIOCIGUAT
     Indication: PULMONARY ARTERIAL HYPERTENSION
     Dosage: UNK
  10. ATROVENT [Concomitant]
     Active Substance: IPRATROPIUM BROMIDE
     Dosage: 17 MCG/L, UNK
     Route: 055
     Dates: start: 20180315
  11. FLUOCINONIDE. [Concomitant]
     Active Substance: FLUOCINONIDE
  12. OMEPRAZOLE. [Concomitant]
     Active Substance: OMEPRAZOLE
     Dosage: UNK
     Route: 048
  13. UPTRAVI [Suspect]
     Active Substance: SELEXIPAG
     Dosage: 200 MG, UNK

REACTIONS (8)
  - Myalgia [None]
  - Chest pain [None]
  - Pleurisy [Recovering/Resolving]
  - Dyspnoea exertional [Recovered/Resolved]
  - Muscular weakness [None]
  - Hospitalisation [None]
  - Muscle spasms [None]
  - Cough [None]

NARRATIVE: CASE EVENT DATE: 20180323
